FAERS Safety Report 8569175 (Version 4)
Quarter: 2012Q4

REPORT INFORMATION
  Report Type: 
  Country: US (occurrence: US)
  Receive Date: 20120518
  Receipt Date: 20121107
  Transmission Date: 20130627
  Serious: Yes (Hospitalization, Other)
  Sender: FDA-Public Use
  Company Number: US-ALEXION-A201200258

PATIENT
  Age: 50 Year
  Sex: Male
  Weight: 94.3 kg

DRUGS (8)
  1. SOLIRIS 300MG [Suspect]
     Indication: PAROXYSMAL NOCTURNAL HAEMOGLOBINURIA
     Dosage: 900 mg, q2w
     Route: 042
     Dates: start: 20110629
  2. EXJADE [Concomitant]
     Indication: CHELATION THERAPY
     Dosage: 2000 mg, qd
     Route: 048
     Dates: start: 20120109
  3. EXJADE [Concomitant]
     Indication: IRON OVERLOAD
  4. HYDROCORTISONE [Concomitant]
     Indication: HYPOPITUITARISM
     Dosage: 15 mg qam, 10 mg qpm
     Route: 048
     Dates: start: 20111212
  5. ANDROGEL [Concomitant]
     Indication: ANDROGEN DEFICIENCY
     Dosage: 20.25 mg 2 pushes, qd
     Route: 061
     Dates: start: 20120316
  6. FOLIC ACID [Concomitant]
     Dosage: 1 mg, qd
     Route: 048
  7. PROTONIX [Concomitant]
     Indication: ABDOMINAL PAIN
     Dosage: 40 mg, qd
     Route: 048
  8. TESTOSTERONE [Concomitant]
     Dosage: 1 pump under arm, qd
     Route: 062

REACTIONS (5)
  - Aplastic anaemia [Recovered/Resolved]
  - Condition aggravated [Recovered/Resolved]
  - Extravascular haemolysis [Recovering/Resolving]
  - Cholelithiasis [Recovered/Resolved]
  - Cholecystitis [Recovered/Resolved]
